FAERS Safety Report 16910986 (Version 1)
Quarter: 2019Q4

REPORT INFORMATION
  Report Type: Spontaneous
  Country: FR (occurrence: FR)
  Receive Date: 20191012
  Receipt Date: 20191012
  Transmission Date: 20200122
  Serious: Yes (Hospitalization)
  Sender: FDA-Public Use
  Company Number: FR-ACCORD-157122

PATIENT
  Age: 64 Year
  Sex: Female
  Weight: 77 kg

DRUGS (5)
  1. LEVOTHYROX [Concomitant]
     Active Substance: LEVOTHYROXINE
  2. GEMZAR [Concomitant]
     Active Substance: GEMCITABINE HYDROCHLORIDE
  3. MAG 2 [Concomitant]
     Active Substance: MAGNESIUM
  4. CARBOPLATIN ACCORD [Suspect]
     Active Substance: CARBOPLATIN
     Indication: OVARIAN CANCER STAGE III
     Dosage: 10 MG/ML
     Route: 042
     Dates: start: 20190218, end: 20190404
  5. CALTRATE [Concomitant]
     Active Substance: CALCIUM CARBONATE

REACTIONS (3)
  - Urticaria [Recovered/Resolved]
  - Dyspnoea [Recovered/Resolved]
  - Limb discomfort [Recovered/Resolved]

NARRATIVE: CASE EVENT DATE: 20190218
